FAERS Safety Report 16439708 (Version 1)
Quarter: 2019Q3

REPORT INFORMATION
  Report Type: Spontaneous
  Country: US (occurrence: US)
  Receive Date: 20190617
  Receipt Date: 20190617
  Transmission Date: 20191004
  Serious: Yes (Other)
  Sender: FDA-Public Use
  Company Number: None

PATIENT
  Age: 25 Year
  Sex: Female
  Weight: 63 kg

DRUGS (3)
  1. AIMOVIG [Suspect]
     Active Substance: ERENUMAB-AOOE
     Indication: MIGRAINE PROPHYLAXIS
     Dosage: ?          OTHER FREQUENCY:ONCE MONTHLY;?
     Route: 030
     Dates: start: 20181003, end: 20190607
  2. RIZATRIPTAN 10 MG [Concomitant]
  3. KYLEENA [Concomitant]
     Active Substance: LEVONORGESTREL

REACTIONS (3)
  - Arthralgia [None]
  - Alopecia [None]
  - Tinnitus [None]

NARRATIVE: CASE EVENT DATE: 20190613
